FAERS Safety Report 16191351 (Version 2)
Quarter: 2019Q2

REPORT INFORMATION
  Report Type: Report from Study
  Country: US (occurrence: US)
  Receive Date: 20190412
  Receipt Date: 20190607
  Transmission Date: 20190711
  Serious: Yes (Hospitalization)
  Sender: FDA-Public Use
  Company Number: US-TEVA-2019-US-1036169

PATIENT
  Age: 81 Year
  Sex: Male

DRUGS (28)
  1. IRINOTECAN INJECTION [Suspect]
     Active Substance: IRINOTECAN
     Route: 042
     Dates: start: 20190225
  2. LEUCOVORIN INJECTION [Suspect]
     Active Substance: LEUCOVORIN CALCIUM
     Route: 042
     Dates: start: 20181112
  3. BBI608 CAPSULE [Suspect]
     Active Substance: NAPABUCASIN
     Indication: COLORECTAL CANCER METASTATIC
     Dosage: 480 MILLIGRAM DAILY;
     Route: 048
     Dates: start: 20181112
  4. K-LOR [Concomitant]
     Active Substance: POTASSIUM CHLORIDE
     Dates: start: 201805
  5. MULTIVITAMIN [Concomitant]
     Active Substance: VITAMINS
     Dates: start: 201706
  6. ZOFRAN [Concomitant]
     Active Substance: ONDANSETRON HYDROCHLORIDE
     Dates: start: 20181031
  7. METOPROLOL TARTRATE. [Concomitant]
     Active Substance: METOPROLOL TARTRATE
  8. 5-FLUOROURACIL INJECTION [Suspect]
     Active Substance: FLUOROURACIL
     Indication: COLORECTAL CANCER METASTATIC
     Dosage: FORTNIGHTY
     Route: 040
     Dates: start: 20181112, end: 20181126
  9. IRINOTECAN INJECTION [Suspect]
     Active Substance: IRINOTECAN
     Indication: COLORECTAL CANCER METASTATIC
     Dosage: FORTNIGHTY
     Route: 042
     Dates: start: 20181112
  10. BBI608 CAPSULE [Suspect]
     Active Substance: NAPABUCASIN
     Dosage: 480 MILLIGRAM DAILY;
     Route: 048
     Dates: start: 20190306
  11. BEVACIZUMAB INJECTION [Suspect]
     Active Substance: BEVACIZUMAB
     Indication: COLORECTAL CANCER METASTATIC
     Dosage: 23.5714 MILLIGRAM DAILY; FORTNIGHTY
     Route: 042
     Dates: start: 20181112
  12. ALBUTEROL SULFATE. [Concomitant]
     Active Substance: ALBUTEROL SULFATE
     Dates: start: 201705
  13. IPRATROPIUM BROMIDE. [Concomitant]
     Active Substance: IPRATROPIUM BROMIDE
     Dates: start: 201706
  14. LEUCOVORIN INJECTION [Suspect]
     Active Substance: LEUCOVORIN CALCIUM
     Indication: COLORECTAL CANCER METASTATIC
     Dosage: FORTNIGHTY
     Route: 042
     Dates: start: 20181112
  15. LEVOTHYROXINE SODIUM. [Concomitant]
     Active Substance: LEVOTHYROXINE SODIUM
  16. MAGIC MOUTHWASH [Concomitant]
     Active Substance: DIPHENHYDRAMINE HYDROCHLORIDE\LIDOCAINE HYDROCHLORIDE\NYSTATIN
  17. MAGNESIUM OXIDE. [Concomitant]
     Active Substance: MAGNESIUM OXIDE
  18. AMIODARONE [Concomitant]
     Active Substance: AMIODARONE
     Dates: start: 201704
  19. OXYGEN. [Concomitant]
     Active Substance: OXYGEN
     Dates: start: 2017
  20. TAMSULOSIN [Concomitant]
     Active Substance: TAMSULOSIN
     Dates: start: 201705
  21. ELIQUIS [Concomitant]
     Active Substance: APIXABAN
     Dates: start: 20180712
  22. IMODIUM A-D [Concomitant]
     Active Substance: LOPERAMIDE HYDROCHLORIDE
     Dates: start: 20181217
  23. 5-FLUOROURACIL INJECTION [Suspect]
     Active Substance: FLUOROURACIL
     Dosage: FORTNIGHTY
     Route: 042
     Dates: start: 20181112
  24. BEVACIZUMAB INJECTION [Suspect]
     Active Substance: BEVACIZUMAB
     Route: 065
     Dates: start: 20190225
  25. ATORVASTATIN [Concomitant]
     Active Substance: ATORVASTATIN
     Dates: start: 201704
  26. CETIRIZINE [Concomitant]
     Active Substance: CETIRIZINE HYDROCHLORIDE
  27. CEFEPIME [Concomitant]
     Active Substance: CEFEPIME HYDROCHLORIDE
     Dates: end: 20180316
  28. FERROUS SULFATE. [Concomitant]
     Active Substance: FERROUS SULFATE
     Dates: start: 201806

REACTIONS (3)
  - Pseudomonas bronchitis [Recovered/Resolved]
  - Chronic obstructive pulmonary disease [Unknown]
  - Pneumonia influenzal [Recovered/Resolved]

NARRATIVE: CASE EVENT DATE: 20190317
